FAERS Safety Report 8961537 (Version 2)
Quarter: 2013Q1

REPORT INFORMATION
  Report Type: Report from Study
  Country: MY (occurrence: MY)
  Receive Date: 20121212
  Receipt Date: 20130320
  Transmission Date: 20140127
  Serious: Yes (Death, Hospitalization, Disabling)
  Sender: FDA-Public Use
  Company Number: PHHO2012MY017718

PATIENT
  Age: 65 None
  Sex: Male
  Weight: 55.7 kg

DRUGS (7)
  1. AFINITOR [Suspect]
     Indication: PANCREATIC NEUROENDOCRINE TUMOUR
     Dosage: 10 MG, QD
     Route: 048
     Dates: start: 20110719, end: 20121127
  2. MORPHINE [Concomitant]
  3. SIMVASTATIN [Concomitant]
     Indication: DIABETES MELLITUS
     Dosage: 20 MG, QD
     Route: 048
     Dates: end: 20121207
  4. SIMVASTATIN [Concomitant]
     Indication: HYPERTENSION
  5. ACTRAPID [Concomitant]
     Indication: DIABETES MELLITUS
     Dosage: 10 IU, TID
     Route: 058
     Dates: end: 20121208
  6. AMLODIPINE [Concomitant]
     Indication: HYPERTENSION
     Dosage: 10 MG, QD
     Route: 048
  7. LACTULOSE [Concomitant]
     Indication: CONSTIPATION
     Dosage: 10 MG, TID
     Route: 048
     Dates: start: 20121202, end: 20121205

REACTIONS (3)
  - Cerebrovascular accident [Not Recovered/Not Resolved]
  - Pneumonia aspiration [Fatal]
  - Cerebral infarction [Not Recovered/Not Resolved]
